FAERS Safety Report 21370711 (Version 1)
Quarter: 2022Q3

REPORT INFORMATION
  Report Type: Spontaneous
  Country: US (occurrence: None)
  Receive Date: 20220922
  Receipt Date: 20220922
  Transmission Date: 20221027
  Serious: Yes (Death)
  Sender: FDA-Public Use
  Company Number: None

PATIENT
  Age: 65 Year
  Sex: Female

DRUGS (1)
  1. TADALAFIL [Suspect]
     Active Substance: TADALAFIL
     Indication: Pulmonary arterial hypertension
     Dosage: 20MG DAILY ORAL?
     Route: 048
     Dates: start: 20220812

REACTIONS (2)
  - Lung disorder [None]
  - Nonspecific reaction [None]

NARRATIVE: CASE EVENT DATE: 20220920
